FAERS Safety Report 6540428-7 (Version None)
Quarter: 2010Q1

REPORT INFORMATION
  Report Type: 
  Country: None (occurrence: None)
  Receive Date: 20100113
  Receipt Date: 20100105
  Transmission Date: 20100710
  Serious: Yes (Hospitalization, Other)
  Sender: FDA-Public Use
  Company Number: 2010SP000943

PATIENT
  Age: 52 Year
  Sex: Male

DRUGS (2)
  1. PEG-INTRON [Suspect]
     Indication: HEPATITIS C
     Dosage: UNK; SC
     Route: 058
     Dates: start: 20091113, end: 20091201
  2. RIBAVIRIN [Suspect]
     Indication: HEPATITIS C
     Dosage: UNK; PO
     Route: 048
     Dates: start: 20091113, end: 20091201

REACTIONS (8)
  - ABDOMINAL PAIN UPPER [None]
  - BACTERIAL INFECTION [None]
  - BLOOD DISORDER [None]
  - HAEMOPTYSIS [None]
  - HEADACHE [None]
  - INFLUENZA LIKE ILLNESS [None]
  - MYOCARDIAL INFARCTION [None]
  - PLATELET COUNT DECREASED [None]
